FAERS Safety Report 9751348 (Version 1)
Quarter: 2013Q4

REPORT INFORMATION
  Report Type: Spontaneous
  Country: US (occurrence: US)
  Receive Date: 20131212
  Receipt Date: 20131212
  Transmission Date: 20140711
  Serious: No
  Sender: FDA-Public Use
  Company Number: US-BIOGENIDEC-2013BI094136

PATIENT
  Sex: Female
  Weight: 61 kg

DRUGS (12)
  1. TECFIDERA [Suspect]
     Indication: PRODUCT USED FOR UNKNOWN INDICATION
     Route: 048
  2. TECFIDERA [Suspect]
     Indication: PRODUCT USED FOR UNKNOWN INDICATION
     Route: 048
  3. BACLOFEN [Concomitant]
  4. DETROL [Concomitant]
  5. EFFEXOR XR [Concomitant]
  6. TYLENOL 8 HR [Concomitant]
  7. PHILLIPS MOM [Concomitant]
  8. DOCUSATE SOD [Concomitant]
  9. OMEGA 3 [Concomitant]
  10. JUVEN REVIGO [Concomitant]
  11. MULTIVITAMIN [Concomitant]
  12. NIACIN [Concomitant]

REACTIONS (2)
  - Constipation [Unknown]
  - Flushing [Unknown]
